FAERS Safety Report 6641766-X (Version None)
Quarter: 2010Q1

REPORT INFORMATION
  Report Type: 
  Country: None (occurrence: None)
  Receive Date: 20100316
  Receipt Date: 20090729
  Transmission Date: 20100710
  Serious: Yes (Disabling, Other)
  Sender: FDA-Public Use
  Company Number: APP200900497

PATIENT
  Age: 47 Year
  Sex: Female

DRUGS (1)
  1. SENSORCAINE [Suspect]
     Indication: PROCEDURAL PAIN
     Dosage: INTRA-ARTICULAR
     Route: 014

REACTIONS (5)
  - BONE CYST [None]
  - CHONDROLYSIS [None]
  - JOINT RANGE OF MOTION DECREASED [None]
  - PAIN [None]
  - THERAPEUTIC PRODUCT INEFFECTIVE [None]
